FAERS Safety Report 10193780 (Version 1)
Quarter: 2014Q2

REPORT INFORMATION
  Report Type: Spontaneous
  Country: US (occurrence: US)
  Receive Date: 20140524
  Receipt Date: 20140524
  Transmission Date: 20141212
  Serious: No
  Sender: FDA-Public Use
  Company Number: US-SANOFI-AVENTIS-2013SA047190

PATIENT
  Age: 69 Year
  Sex: Male

DRUGS (3)
  1. SOLOSTAR [Suspect]
     Indication: TYPE 2 DIABETES MELLITUS
  2. LANTUS SOLOSTAR [Suspect]
     Indication: TYPE 2 DIABETES MELLITUS
     Dosage: FREQUENCY :AM AND PM DOSE:20 UNIT(S)
     Route: 051
  3. INSULIN [Concomitant]

REACTIONS (2)
  - Injection site haemorrhage [Recovered/Resolved]
  - Weight increased [Unknown]
